FAERS Safety Report 23609493 (Version 2)
Quarter: 2025Q1

REPORT INFORMATION
  Report Type: Spontaneous
  Country: US (occurrence: US)
  Receive Date: 20240308
  Receipt Date: 20250214
  Transmission Date: 20250409
  Serious: No
  Sender: AVEO PHARMACEUTICALS
  Company Number: US-AVEO PHARMACEUTICALS, INC.-2024-AVEO-US000100

PATIENT

DRUGS (13)
  1. FOTIVDA [Suspect]
     Active Substance: TIVOZANIB HYDROCHLORIDE
     Indication: Renal cell carcinoma
     Dosage: 1.34 MG, DAILY FOR 21 DAYS WITH 7 DAYS OFF (28-DAY CYCLE)
     Route: 048
     Dates: end: 20240225
  2. AMLODIPINE [Concomitant]
     Active Substance: AMLODIPINE BESYLATE
  3. BASAGLAR KWIKPEN [Concomitant]
     Active Substance: INSULIN GLARGINE
     Route: 058
  4. COLACE [Concomitant]
     Active Substance: DOCUSATE SODIUM
  5. DOXAZOSIN MESYLATE [Concomitant]
     Active Substance: DOXAZOSIN MESYLATE
  6. LEVOTHYROXINE SODIUM [Concomitant]
     Active Substance: LEVOTHYROXINE SODIUM
  7. LISINOPRIL [Concomitant]
     Active Substance: LISINOPRIL
  8. MIRTAZAPINE [Concomitant]
     Active Substance: MIRTAZAPINE
  9. NOVOLIN N [Concomitant]
     Active Substance: INSULIN HUMAN
  10. ROPINIROLE HYDROCHLORIDE [Concomitant]
     Active Substance: ROPINIROLE HYDROCHLORIDE
  11. ROSUVASTATIN CALCIUM [Concomitant]
     Active Substance: ROSUVASTATIN CALCIUM
  12. OMEPRAZOLE [Concomitant]
     Active Substance: OMEPRAZOLE
  13. LORATADINE [Concomitant]
     Active Substance: LORATADINE

REACTIONS (2)
  - Fatigue [Not Recovered/Not Resolved]
  - Disease progression [Unknown]

NARRATIVE: CASE EVENT DATE: 20240225
